FAERS Safety Report 9380863 (Version 2)
Quarter: 2013Q3

REPORT INFORMATION
  Report Type: Spontaneous
  Country: DE (occurrence: DE)
  Receive Date: 20130703
  Receipt Date: 20130722
  Transmission Date: 20140515
  Serious: Yes (Hospitalization)
  Sender: FDA-Public Use
  Company Number: DE-AMGEN-DEUSP2013045463

PATIENT
  Sex: 0

DRUGS (8)
  1. NEULASTA [Suspect]
     Indication: PRODUCT USED FOR UNKNOWN INDICATION
     Dosage: 6 MG, AS PER PROTOCOL
     Route: 058
  2. ADRIAMYCIN /00330901/ [Suspect]
     Indication: HODGKIN^S DISEASE
     Dosage: UNK MG/M2, UNK
     Dates: start: 20130527, end: 20130527
  3. BLEOMYCIN [Suspect]
     Indication: HODGKIN^S DISEASE
     Dosage: UNK MG/M2, UNK
     Dates: start: 20130603, end: 20130603
  4. PROCARBAZINE [Suspect]
     Indication: HODGKIN^S DISEASE
     Dosage: UNK MG/M2, UNK
     Dates: start: 20130527, end: 20130602
  5. VINCRISTINE [Suspect]
     Indication: HODGKIN^S DISEASE
     Dosage: UNK MG/M2, UNK
     Dates: start: 20130603, end: 20130603
  6. ETOPOSIDE [Suspect]
     Indication: HODGKIN^S DISEASE
     Dosage: UNK MG/M2, UNK
     Dates: start: 20130527, end: 20130529
  7. CYCLOPHOSPHAMIDE [Suspect]
     Indication: HODGKIN^S DISEASE
     Dosage: UNK MG/M2, UNK
     Dates: start: 20130527, end: 20130527
  8. PREDNISONE [Suspect]
     Indication: HODGKIN^S DISEASE
     Dosage: UNK MG/M2, UNK
     Dates: start: 20130527, end: 20130609

REACTIONS (1)
  - Back pain [Recovered/Resolved]
